FAERS Safety Report 8928804 (Version 2)
Quarter: 2012Q4

REPORT INFORMATION
  Report Type: 
  Country: US (occurrence: US)
  Receive Date: 20121128
  Receipt Date: 20121210
  Transmission Date: 20130627
  Serious: No
  Sender: FDA-Public Use
  Company Number: US-PFIZER INC-2012296612

PATIENT
  Age: 44 Year
  Sex: Male
  Weight: 127 kg

DRUGS (15)
  1. CHANTIX [Suspect]
     Indication: SMOKING CESSATION THERAPY
     Dosage: 0.5 mg, daily (for few months)
     Route: 048
     Dates: start: 2008, end: 2008
  2. CHANTIX [Suspect]
     Dosage: 1 mg, 2x/day
     Route: 048
     Dates: start: 2008, end: 2008
  3. METOPROLOL [Concomitant]
     Indication: BLOOD PRESSURE HIGH
     Dosage: 25 mg, daily
  4. LISINOPRIL [Concomitant]
     Indication: BLOOD PRESSURE HIGH
     Dosage: 20 mg, daily
  5. OXYCODONE [Concomitant]
     Indication: BACK DISORDER
     Dosage: 15 mg, every 4 hrs
     Route: 048
  6. OXYCODONE [Concomitant]
     Indication: NECK DISCOMFORT
  7. OXYCODONE [Concomitant]
     Indication: KNEE INJURY
  8. OXYCODONE [Concomitant]
     Indication: SHOULDER DISCOMFORT
  9. VITAMIN D [Concomitant]
     Dosage: 14 IU, daily
  10. OMEGA 3 [Concomitant]
     Dosage: 1200 IU, 1x/day
  11. ASPIRIN ^BAYER^ [Concomitant]
     Dosage: lower dose daily
  12. ONE-A-DAY [Concomitant]
     Dosage: UNK
  13. SIMVASTATIN [Concomitant]
     Indication: HIGH CHOLESTEROL
     Dosage: UNK
     Dates: end: 2012
  14. CYCLOBENZAPRINE [Concomitant]
     Dosage: 10 mg, daily
  15. TESTAPRIL [Concomitant]
     Indication: TESTOSTERONE LOW
     Dosage: UNK

REACTIONS (6)
  - Nausea [Recovered/Resolved]
  - Nightmare [Recovered/Resolved]
  - Abnormal dreams [Recovered/Resolved]
  - Somnolence [Recovered/Resolved]
  - Dyspnoea [Recovered/Resolved]
  - Abdominal discomfort [Unknown]
